FAERS Safety Report 8296650-5 (Version None)
Quarter: 2012Q2

REPORT INFORMATION
  Report Type: 
  Country: None (occurrence: None)
  Receive Date: 20120418
  Receipt Date: 20120418
  Transmission Date: 20120825
  Serious: Yes (Hospitalization)
  Sender: FDA-Public Use
  Company Number: None

PATIENT
  Age: 71 Year
  Sex: Female
  Weight: 71 kg

DRUGS (1)
  1. IOHEXOL [Suspect]
     Indication: SCAN WITH CONTRAST
     Dosage: 165 ML
     Route: 042
     Dates: start: 20120416, end: 20120416

REACTIONS (1)
  - RENAL FAILURE ACUTE [None]
